FAERS Safety Report 23220533 (Version 1)
Quarter: 2023Q4

REPORT INFORMATION
  Report Type: Spontaneous
  Country: CN (occurrence: CN)
  Receive Date: 20231123
  Receipt Date: 20231123
  Transmission Date: 20240110
  Serious: Yes (Hospitalization, Other)
  Sender: FDA-Public Use
  Company Number: None

PATIENT
  Age: 48 Year
  Sex: Female
  Weight: 50 kg

DRUGS (4)
  1. CYCLOPHOSPHAMIDE [Suspect]
     Active Substance: CYCLOPHOSPHAMIDE
     Indication: Breast cancer female
     Dosage: 1.0 G, ONE TIME IN ONE DAY, DILUTED WITH 100 ML OF 0.9% SODIUM CHLORIDE, AS A PART OF FIFTH NEOADJUV
     Route: 041
     Dates: start: 20231108, end: 20231108
  2. SODIUM CHLORIDE [Suspect]
     Active Substance: SODIUM CHLORIDE
     Indication: Medication dilution
     Dosage: (0.9%, INJECTION), 100 ML, ONE TIME IN ONE DAY, USED TO DILUTE 1.0G OF CYCLOPHOSPHAMIDE, AS A PART O
     Route: 041
     Dates: start: 20231108, end: 20231108
  3. DEXTROSE [Suspect]
     Active Substance: DEXTROSE\DEXTROSE MONOHYDRATE
     Indication: Medication dilution
     Dosage: (5%, INJECTION), 100 ML, ONE TIME IN ONE DAY, USED TO DILUTE 80MG OF PIRARUBICIN HYDROCHLORIDE, AS A
     Route: 041
     Dates: start: 20231108, end: 20231108
  4. PIRARUBICIN HYDROCHLORIDE [Suspect]
     Active Substance: PIRARUBICIN HYDROCHLORIDE
     Indication: Breast cancer female
     Dosage: 80MG, ONE TIME IN ONE DAY, DILUTED WITH 100 ML OF 5% GLUCOSE, AS A PART OF FIFTH NEOADJUVANT CHEMOTH
     Route: 041
     Dates: start: 20231108, end: 20231108

REACTIONS (7)
  - Myelosuppression [Recovering/Resolving]
  - White blood cell count decreased [Recovering/Resolving]
  - Neutrophil count decreased [Recovering/Resolving]
  - Lymphocyte count decreased [Recovering/Resolving]
  - Red blood cell count decreased [Recovering/Resolving]
  - Haemoglobin decreased [Recovering/Resolving]
  - Platelet count decreased [Recovering/Resolving]

NARRATIVE: CASE EVENT DATE: 20231111
